FAERS Safety Report 12657640 (Version 1)
Quarter: 2016Q3

REPORT INFORMATION
  Report Type: Spontaneous
  Country: ES (occurrence: ES)
  Receive Date: 20160816
  Receipt Date: 20160816
  Transmission Date: 20161109
  Serious: Yes (Hospitalization, Other)
  Sender: FDA-Public Use
  Company Number: ES-PFIZER INC-2016384067

PATIENT
  Age: 75 Year
  Sex: Female

DRUGS (5)
  1. HIDROALTESONA [Concomitant]
     Dosage: 1 DF, 2X/DAY
  2. ADIRO [Concomitant]
     Active Substance: ASPIRIN
     Dosage: 1 DF, 1X/DAY
  3. LEVOTHYROXINE. [Concomitant]
     Active Substance: LEVOTHYROXINE
     Indication: THYROID DISORDER
     Dosage: 1 DF, 1X/DAY
  4. OMEPRAZOLE. [Concomitant]
     Active Substance: OMEPRAZOLE
     Indication: PROPHYLAXIS
     Dosage: 1 DF, 1X/DAY
  5. SOMAVERT [Suspect]
     Active Substance: PEGVISOMANT
     Indication: PITUITARY TUMOUR BENIGN
     Dosage: 10
     Dates: start: 20060101

REACTIONS (5)
  - Disease progression [Unknown]
  - Pituitary tumour benign [Unknown]
  - Infarction [Recovered/Resolved with Sequelae]
  - Diabetes mellitus [Not Recovered/Not Resolved]
  - Hypercholesterolaemia [Not Recovered/Not Resolved]

NARRATIVE: CASE EVENT DATE: 20160114
